FAERS Safety Report 23344325 (Version 4)
Quarter: 2024Q1

REPORT INFORMATION
  Report Type: Spontaneous
  Country: IT (occurrence: IT)
  Receive Date: 20231228
  Receipt Date: 20240223
  Transmission Date: 20240410
  Serious: Yes (Death, Hospitalization)
  Sender: FDA-Public Use
  Company Number: IT-ROCHE-2593522

PATIENT
  Age: 60 Year
  Sex: Female
  Weight: 110 kg

DRUGS (52)
  1. CAPECITABINE [Suspect]
     Active Substance: CAPECITABINE
     Indication: Breast cancer metastatic
     Route: 048
     Dates: start: 20191209, end: 20191230
  2. CAPECITABINE [Suspect]
     Active Substance: CAPECITABINE
     Indication: Breast cancer metastatic
     Route: 048
     Dates: start: 20200120, end: 20200611
  3. CAPECITABINE [Suspect]
     Active Substance: CAPECITABINE
     Indication: Breast cancer metastatic
     Dosage: 1500 MG TWICE PER DAY
     Route: 048
     Dates: start: 20200618
  4. CAPECITABINE [Suspect]
     Active Substance: CAPECITABINE
     Indication: Breast cancer metastatic
     Dosage: MOST RECENT DOSE PRIOR TO THE EVENT: 1/SEP/2020
     Route: 048
     Dates: start: 20200901
  5. PACLITAXEL [Suspect]
     Active Substance: PACLITAXEL
     Indication: Breast cancer metastatic
     Dosage: MOST RECENT DOSE PRIOR TO THE EVENT: 27/JUN/2017
     Route: 042
     Dates: start: 20170303, end: 20170413
  6. PACLITAXEL [Suspect]
     Active Substance: PACLITAXEL
     Indication: Breast cancer metastatic
     Route: 042
     Dates: start: 20170420, end: 20170606
  7. PACLITAXEL [Suspect]
     Active Substance: PACLITAXEL
     Indication: Breast cancer metastatic
     Route: 042
     Dates: start: 20170620, end: 20170620
  8. PACLITAXEL [Suspect]
     Active Substance: PACLITAXEL
     Indication: Breast cancer metastatic
     Route: 042
     Dates: start: 20170627
  9. PACLITAXEL [Suspect]
     Active Substance: PACLITAXEL
     Indication: Breast cancer metastatic
     Dosage: MOST RECENT DOSE PRIOR TO THE EVENT: 12/SEP/2017
     Route: 042
     Dates: start: 20170912
  10. PACLITAXEL [Suspect]
     Active Substance: PACLITAXEL
     Indication: Breast cancer metastatic
     Dosage: MOST RECENT DOSE PRIOR TO THE EVENT: 24/SEP/2020
     Route: 042
     Dates: start: 20200924
  11. PERJETA [Suspect]
     Active Substance: PERTUZUMAB
     Indication: Breast cancer metastatic
     Dosage: MOST RECENT DOSE PRIOR TO THE EVENT: 20/JUN/2020
     Route: 042
     Dates: start: 20170303, end: 20170303
  12. PERJETA [Suspect]
     Active Substance: PERTUZUMAB
     Indication: Breast cancer metastatic
     Route: 042
     Dates: start: 20170330, end: 20170606
  13. PERJETA [Suspect]
     Active Substance: PERTUZUMAB
     Indication: Breast cancer metastatic
     Route: 042
     Dates: start: 20170620
  14. PERJETA [Suspect]
     Active Substance: PERTUZUMAB
     Indication: Breast cancer metastatic
     Dosage: MOST RECENT DOSE PRIOR TO THE EVENT: 14/MAY/2019
     Route: 042
     Dates: start: 20190514
  15. HERCEPTIN [Suspect]
     Active Substance: TRASTUZUMAB
     Indication: Breast cancer metastatic
     Dosage: MOST RECENT DOSE PRIOR TO THE EVENT: 20/JUN/2017
     Route: 042
     Dates: start: 20170303, end: 20170303
  16. HERCEPTIN [Suspect]
     Active Substance: TRASTUZUMAB
     Indication: Breast cancer metastatic
     Dates: start: 20170330
  17. HERCEPTIN [Suspect]
     Active Substance: TRASTUZUMAB
     Indication: Breast cancer metastatic
     Route: 042
     Dates: start: 20170620
  18. HERCEPTIN [Suspect]
     Active Substance: TRASTUZUMAB
     Indication: Breast cancer metastatic
     Dosage: MOST RECENT DOSE PRIOR TO THE EVENT: 14 MAY 2019
     Route: 042
     Dates: start: 20190514
  19. KADCYLA [Suspect]
     Active Substance: ADO-TRASTUZUMAB EMTANSINE
     Indication: Breast cancer metastatic
     Dosage: MOST RECENT DOSE PRIOR TO THE EVENT: 04/SEP/2019
     Route: 042
     Dates: start: 20190612, end: 20190703
  20. KADCYLA [Suspect]
     Active Substance: ADO-TRASTUZUMAB EMTANSINE
     Indication: Breast cancer metastatic
     Route: 042
     Dates: start: 20190724, end: 20190724
  21. KADCYLA [Suspect]
     Active Substance: ADO-TRASTUZUMAB EMTANSINE
     Indication: Breast cancer metastatic
     Route: 042
     Dates: start: 20190814, end: 20190814
  22. KADCYLA [Suspect]
     Active Substance: ADO-TRASTUZUMAB EMTANSINE
     Indication: Breast cancer metastatic
     Route: 042
     Dates: start: 20190904
  23. KADCYLA [Suspect]
     Active Substance: ADO-TRASTUZUMAB EMTANSINE
     Indication: Breast cancer metastatic
     Dosage: MOST RECENT DOSE PRIOR TO THE EVENT: 12 NOV 2019
     Route: 042
     Dates: start: 20191112
  24. ARIMIDEX [Suspect]
     Active Substance: ANASTROZOLE
     Indication: Breast cancer metastatic
     Dosage: MOST RECENT DOSE PRIOR TO AE 12/JUN/2019
     Route: 048
     Dates: start: 20170918, end: 20190612
  25. TYKERB [Suspect]
     Active Substance: LAPATINIB DITOSYLATE
     Indication: Breast cancer metastatic
     Dosage: MOST RECENT DOSE PRIOR TO AE 19/JUN/2020
     Route: 048
     Dates: start: 20191209, end: 20200619
  26. ERIBULIN [Suspect]
     Active Substance: ERIBULIN
     Route: 042
     Dates: start: 20210712, end: 20210825
  27. CITALOPRAM [Concomitant]
     Active Substance: CITALOPRAM HYDROBROMIDE
     Route: 048
  28. OMEPRAZOLE [Concomitant]
     Active Substance: OMEPRAZOLE
     Dosage: ONGOING = CHECKED
     Route: 048
     Dates: start: 20191209
  29. ZOLEDRONIC ACID [Concomitant]
     Active Substance: ZOLEDRONIC ACID
     Dosage: ONGOING = CHECKED
     Route: 042
     Dates: start: 20170215
  30. ZOLEDRONIC ACID [Concomitant]
     Active Substance: ZOLEDRONIC ACID
     Dates: start: 20170320
  31. ZOLEDRONIC ACID [Concomitant]
     Active Substance: ZOLEDRONIC ACID
     Dosage: ONGOING = CHECKED?EVERY 28GG
     Route: 042
     Dates: start: 20200120
  32. CHOLECALCIFEROL [Concomitant]
     Active Substance: CHOLECALCIFEROL
     Indication: Vitamin D deficiency
     Route: 058
     Dates: start: 20180320, end: 20210615
  33. CALCIUM CARBONATE\CHOLECALCIFEROL [Concomitant]
     Active Substance: CALCIUM CARBONATE\CHOLECALCIFEROL
     Indication: Vitamin D deficiency
     Route: 048
     Dates: start: 20180320, end: 20210615
  34. LOSARTAN [Concomitant]
     Active Substance: LOSARTAN
     Indication: Hypertensive crisis
     Dosage: ONGOING = CHECKED
     Dates: start: 20180313
  35. LOSARTAN [Concomitant]
     Active Substance: LOSARTAN
     Indication: Hypertensive crisis
     Dosage: ONGOING = CHECKED
     Dates: end: 20180312
  36. TORSEMIDE [Concomitant]
     Active Substance: TORSEMIDE
     Indication: Hypertensive crisis
     Dosage: ONGOING = CHECKED
     Route: 048
     Dates: start: 20180313
  37. CHLORPHENIRAMINE MALEATE [Concomitant]
     Active Substance: CHLORPHENIRAMINE MALEATE
     Dates: start: 20200924
  38. DEXAMETHASONE [Concomitant]
     Active Substance: DEXAMETHASONE
     Route: 042
     Dates: start: 20170303, end: 20171003
  39. DEXAMETHASONE [Concomitant]
     Active Substance: DEXAMETHASONE
     Route: 042
     Dates: start: 20190612, end: 20191112
  40. DEXAMETHASONE [Concomitant]
     Active Substance: DEXAMETHASONE
     Route: 042
     Dates: start: 20200924
  41. CIMETIDINE [Concomitant]
     Active Substance: CIMETIDINE
     Route: 042
     Dates: start: 20200924
  42. ERTAPENEM [Concomitant]
     Active Substance: ERTAPENEM
     Route: 042
     Dates: start: 20200813, end: 20200828
  43. INSULIN GLARGINE [Concomitant]
     Active Substance: INSULIN GLARGINE
     Dosage: ONGOING=CHECKED
     Dates: start: 20190901
  44. ONDANSETRON [Concomitant]
     Active Substance: ONDANSETRON
     Route: 042
     Dates: start: 20200924
  45. RANITIDINE [Concomitant]
     Active Substance: RANITIDINE
     Route: 042
     Dates: start: 20180303, end: 20180912
  46. FENTANYL [Concomitant]
     Active Substance: FENTANYL\FENTANYL CITRATE
  47. PREDNISONE [Concomitant]
     Active Substance: PREDNISONE
  48. ATENOLOL [Concomitant]
     Active Substance: ATENOLOL
  49. INSULIN GLARGINE [Concomitant]
     Active Substance: INSULIN GLARGINE
  50. GLYCOPYRROLATE [Concomitant]
     Active Substance: GLYCOPYRROLATE
  51. FUROSEMIDE [Concomitant]
     Active Substance: FUROSEMIDE
     Dates: start: 20210901
  52. PANTOPRAZOLE [Concomitant]
     Active Substance: PANTOPRAZOLE
     Dates: start: 20210901

REACTIONS (11)
  - Cardiac failure [Fatal]
  - Hypertrophic cardiomyopathy [Recovered/Resolved]
  - Fatigue [Recovered/Resolved]
  - Palmar-plantar erythrodysaesthesia syndrome [Recovered/Resolved]
  - Epistaxis [Recovered/Resolved]
  - Thrombocytopenia [Recovered/Resolved]
  - Thrombocytopenia [Recovered/Resolved]
  - Vitamin D deficiency [Recovered/Resolved]
  - Alanine aminotransferase increased [Recovered/Resolved]
  - Aspartate aminotransferase increased [Recovered/Resolved]
  - Blood bilirubin increased [Recovered/Resolved]

NARRATIVE: CASE EVENT DATE: 20180320
